FAERS Safety Report 19614035 (Version 1)
Quarter: 2021Q3

REPORT INFORMATION
  Report Type: Spontaneous
  Country: TW (occurrence: TW)
  Receive Date: 20210727
  Receipt Date: 20210727
  Transmission Date: 20211014
  Serious: Yes (Other)
  Sender: FDA-Public Use
  Company Number: TW-STRIDES ARCOLAB LIMITED-2021SP025412

PATIENT
  Age: 22 Year
  Sex: Male

DRUGS (2)
  1. IBUPROFEN. [Suspect]
     Active Substance: IBUPROFEN
     Indication: PRODUCT USED FOR UNKNOWN INDICATION
     Dosage: UNK
     Route: 065
  2. TENOXICAM [Suspect]
     Active Substance: TENOXICAM
     Indication: PRODUCT USED FOR UNKNOWN INDICATION
     Dosage: UNK
     Route: 065

REACTIONS (6)
  - Hypohidrosis [Recovered/Resolved]
  - Corneal erosion [Recovered/Resolved]
  - Toxic epidermal necrolysis [Recovered/Resolved]
  - Sebaceous gland disorder [Recovered/Resolved]
  - Nail dystrophy [Recovered/Resolved]
  - Post inflammatory pigmentation change [Recovered/Resolved]
